FAERS Safety Report 6421594-0 (Version None)
Quarter: 2009Q4

REPORT INFORMATION
  Report Type: 
  Country: None (occurrence: None)
  Receive Date: 20091030
  Receipt Date: 20091013
  Transmission Date: 20100525
  Serious: Yes (Disabling)
  Sender: FDA-Public Use
  Company Number: PHHY2009JP46875

PATIENT
  Age: 65 Year
  Sex: Male

DRUGS (1)
  1. LAMISIL [Suspect]
     Dosage: 125 MG/DAY
     Route: 048
     Dates: start: 20090907, end: 20091001

REACTIONS (3)
  - ARRHYTHMIA [None]
  - BLOOD PRESSURE INCREASED [None]
  - VENTRICULAR EXTRASYSTOLES [None]
